FAERS Safety Report 13110574 (Version 1)
Quarter: 2017Q1

REPORT INFORMATION
  Report Type: Spontaneous
  Country: US (occurrence: US)
  Receive Date: 20170112
  Receipt Date: 20170112
  Transmission Date: 20170428
  Serious: Yes (Other)
  Sender: FDA-Public Use
  Company Number: US-ROCHE-1243829

PATIENT
  Age: 51 Year
  Sex: Male

DRUGS (2)
  1. ACTIVASE [Suspect]
     Active Substance: ALTEPLASE
     Indication: ISCHAEMIC STROKE
     Dosage: BOLUS
     Route: 065
  2. ACTIVASE [Suspect]
     Active Substance: ALTEPLASE
     Dosage: ONE HOUR INFUSION
     Route: 065

REACTIONS (7)
  - Gingival bleeding [Unknown]
  - Oedema peripheral [Unknown]
  - Tongue haemorrhage [Unknown]
  - Catheter site haemorrhage [Unknown]
  - Haematoma [Unknown]
  - Ecchymosis [Unknown]
  - Procedural haemorrhage [Unknown]
